FAERS Safety Report 4268727-2 (Version None)
Quarter: 2004Q1

REPORT INFORMATION
  Report Type: 
  Country: None (occurrence: None)
  Receive Date: 20040112
  Receipt Date: 20040102
  Transmission Date: 20041129
  Serious: Yes (Death, Other)
  Sender: FDA-Public Use
  Company Number: PHEH2004US00479

PATIENT
  Age: 52 Year
  Sex: Male

DRUGS (10)
  1. CLOZARIL [Suspect]
     Indication: SCHIZOPHRENIA
     Dosage: 1100 MG, QD
     Route: 048
  2. CLOZARIL [Suspect]
     Dosage: 900 MG, QD
     Route: 048
  3. OLANZAPINE [Concomitant]
  4. VALPROIC ACID [Concomitant]
  5. AMANTADINE HCL [Concomitant]
  6. ANTICHOLINERGICS [Suspect]
  7. SYMMETREL                               /NET/ [Concomitant]
  8. ANTIHYPERTENSIVES [Concomitant]
  9. ALBUTEROL [Concomitant]
  10. PREDNISONE [Concomitant]

REACTIONS (7)
  - ASPIRATION [None]
  - GASTRIC DISORDER [None]
  - GASTROOESOPHAGEAL REFLUX DISEASE [None]
  - IMPAIRED GASTRIC EMPTYING [None]
  - OESOPHAGEAL STENOSIS [None]
  - PULMONARY CONGESTION [None]
  - WHEEZING [None]
